FAERS Safety Report 6326203-7 (Version None)
Quarter: 2009Q3

REPORT INFORMATION
  Report Type: 
  Country: None (occurrence: None)
  Receive Date: 20090824
  Receipt Date: 20090810
  Transmission Date: 20100115
  Serious: Yes (Other)
  Sender: FDA-Public Use
  Company Number: GB-MYLANLABS-2009S1013914

PATIENT
  Age: 63 Year
  Sex: Female

DRUGS (7)
  1. TEMAZEPAM [Suspect]
     Indication: INSOMNIA
     Dosage: 10MG NOCTE
  2. TEMAZEPAM [Suspect]
     Dosage: 20MG NOCTE (INCREASED FROM 10MG NOCTE)
  3. TEMAZEPAM [Suspect]
     Dosage: 20MG NOCTE (INCREASED FROM 10MG NOCTE)
  4. LORAZEPAM [Suspect]
     Indication: INSOMNIA
     Dosage: A TRIAL OF 0.5MG NOCTE
  5. MORPHINE [Concomitant]
     Dosage: 10MG NOCTE
  6. AMITRIPTYLINE [Concomitant]
     Dosage: 25MG TWICE DAILY
  7. AMITRIPTYLINE [Concomitant]
     Dosage: 50MG NOCTE

REACTIONS (1)
  - SLEEP APNOEA SYNDROME [None]
